FAERS Safety Report 7602295-X (Version None)
Quarter: 2011Q3

REPORT INFORMATION
  Report Type: 
  Country: None (occurrence: None)
  Receive Date: 20110711
  Receipt Date: 20110627
  Transmission Date: 20111222
  Serious: Yes (Other)
  Sender: FDA-Public Use
  Company Number: US-MYLANLABS-2011S1013568

PATIENT
  Age: 5 Year
  Sex: Male

DRUGS (2)
  1. DEXAMETHASONE [Concomitant]
     Indication: ACUTE LYMPHOCYTIC LEUKAEMIA
     Dosage: 5-DAY PULSE THERAPY
     Route: 065
  2. MERCAPTOPURINE [Suspect]
     Indication: ACUTE LYMPHOCYTIC LEUKAEMIA
     Dosage: DAILY DOSE
     Route: 065

REACTIONS (1)
  - HYPOGLYCAEMIA [None]
